FAERS Safety Report 8292684-5 (Version None)
Quarter: 2012Q2

REPORT INFORMATION
  Report Type: 
  Country: None (occurrence: None)
  Receive Date: 20120417
  Receipt Date: 20110505
  Transmission Date: 20120825
  Serious: No
  Sender: FDA-Public Use
  Company Number: US-ASTRAZENECA-2009UW15867

PATIENT
  Age: 917 Month
  Sex: Female

DRUGS (16)
  1. ARICEPT [Concomitant]
  2. TRAVATAN [Concomitant]
  3. TICLID [Concomitant]
  4. FOLIC ACID [Concomitant]
  5. PREDNISONE [Concomitant]
  6. CRESTOR [Suspect]
     Route: 048
  7. PLENDIL [Concomitant]
  8. ASPIRIN [Concomitant]
  9. FISH OIL [Concomitant]
  10. NEXIUM [Suspect]
     Route: 048
  11. LABETALOL HCL [Concomitant]
  12. CALCIUM CARBONATE [Concomitant]
  13. LOFIBRA [Concomitant]
  14. SYNTHROID [Concomitant]
  15. ALPHAGAN [Concomitant]
  16. MULTIVITAMIN [Concomitant]

REACTIONS (3)
  - ILL-DEFINED DISORDER [None]
  - GASTRIC DISORDER [None]
  - DRUG DOSE OMISSION [None]
